FAERS Safety Report 13748421 (Version 3)
Quarter: 2017Q3

REPORT INFORMATION
  Report Type: Report from Study
  Country: None (occurrence: US)
  Receive Date: 20170713
  Receipt Date: 20170825
  Transmission Date: 20171127
  Serious: Yes (Hospitalization, Other)
  Sender: FDA-Public Use
  Company Number: US-ABBVIE-17K-163-2032703-00

PATIENT
  Age: 58 Year
  Sex: Male

DRUGS (4)
  1. HUMIRA [Suspect]
     Active Substance: ADALIMUMAB
     Indication: PSORIATIC ARTHROPATHY
     Route: 058
     Dates: start: 201611
  2. VITAMIN D3 [Concomitant]
     Active Substance: CHOLECALCIFEROL
     Indication: PRODUCT USED FOR UNKNOWN INDICATION
     Dosage: 4000 BTU
  3. VITAMIN D2 [Concomitant]
     Active Substance: ERGOCALCIFEROL
     Indication: PRODUCT USED FOR UNKNOWN INDICATION
     Dosage: 50,000 BTU
  4. HUMIRA [Suspect]
     Active Substance: ADALIMUMAB
     Route: 058

REACTIONS (17)
  - Depression [Unknown]
  - Injection site papule [Recovered/Resolved]
  - Psoriasis [Unknown]
  - Neck pain [Unknown]
  - Drug ineffective [Unknown]
  - Back pain [Unknown]
  - Heart rate decreased [Unknown]
  - Arthralgia [Unknown]
  - Irregular breathing [Unknown]
  - Loss of personal independence in daily activities [Unknown]
  - Blood pressure measurement [Unknown]
  - Chest pain [Unknown]
  - Pulmonary thrombosis [Unknown]
  - Myocardial infarction [Unknown]
  - Fatigue [Not Recovered/Not Resolved]
  - Heart rate increased [Unknown]
  - Headache [Unknown]

NARRATIVE: CASE EVENT DATE: 201705
